FAERS Safety Report 12401700 (Version 1)
Quarter: 2016Q2

REPORT INFORMATION
  Report Type: Spontaneous
  Country: IT (occurrence: FR)
  Receive Date: 20160525
  Receipt Date: 20160525
  Transmission Date: 20160815
  Serious: Yes (Hospitalization)
  Sender: FDA-Public Use
  Company Number: FR-FRI-1000084867

PATIENT
  Age: 81 Year
  Sex: Female

DRUGS (10)
  1. MONUROL [Suspect]
     Active Substance: FOSFOMYCIN TROMETHAMINE
     Indication: URINARY TRACT INFECTION
     Dosage: 0.0333 DF
     Route: 048
     Dates: end: 20160215
  2. MONUROL [Suspect]
     Active Substance: FOSFOMYCIN TROMETHAMINE
     Indication: URINARY TRACT INFECTION
  3. ISOPHANE INSULIN [Concomitant]
     Active Substance: INSULIN NOS
  4. IMOVANE [Concomitant]
     Active Substance: ZOPICLONE
  5. FUROSEMIDE. [Concomitant]
     Active Substance: FUROSEMIDE
  6. LERCANIDIPINE [Concomitant]
     Active Substance: LERCANIDIPINE
  7. CORGARD [Concomitant]
     Active Substance: NADOLOL
     Dosage: 1 DF
  8. CIFLOX [Concomitant]
     Active Substance: CIPROFLOXACIN
     Dosage: 2 DF
     Dates: start: 20160301, end: 20160303
  9. VALSARTAN. [Concomitant]
     Active Substance: VALSARTAN
     Indication: HYPERTENSION
     Dosage: 160 MG
  10. SIMVASTATINE [Concomitant]
     Active Substance: SIMVASTATIN

REACTIONS (4)
  - Product use issue [Recovered/Resolved]
  - Mucosal necrosis [Recovered/Resolved]
  - Off label use [Recovered/Resolved]
  - Immune thrombocytopenic purpura [Recovering/Resolving]

NARRATIVE: CASE EVENT DATE: 20160228
